FAERS Safety Report 17020135 (Version 1)
Quarter: 2019Q4

REPORT INFORMATION
  Report Type: Report from Study
  Country: US (occurrence: US)
  Receive Date: 20191112
  Receipt Date: 20191112
  Transmission Date: 20200122
  Serious: Yes (Other)
  Sender: FDA-Public Use
  Company Number: US-ROCHE-2461633

PATIENT
  Sex: Female

DRUGS (5)
  1. PERTUZUMAB. [Suspect]
     Active Substance: PERTUZUMAB
     Indication: HER-2 POSITIVE BREAST CANCER
     Route: 065
  2. CARBOPLATIN. [Suspect]
     Active Substance: CARBOPLATIN
     Indication: HER-2 POSITIVE BREAST CANCER
     Route: 065
  3. DOCETAXEL. [Suspect]
     Active Substance: DOCETAXEL
     Indication: HER-2 POSITIVE BREAST CANCER
     Route: 065
  4. TRASTUZUMAB. [Suspect]
     Active Substance: TRASTUZUMAB
     Indication: HER-2 POSITIVE BREAST CANCER
     Route: 065
  5. NAB-PACLITAXEL [Suspect]
     Active Substance: PACLITAXEL
     Indication: HER-2 POSITIVE BREAST CANCER
     Route: 065

REACTIONS (15)
  - Chest wall abscess [Unknown]
  - Abscess limb [Unknown]
  - Breast abscess [Unknown]
  - Wound infection [Unknown]
  - Arthritis bacterial [Unknown]
  - Subcutaneous abscess [Unknown]
  - Abscess [Unknown]
  - Vaginal abscess [Unknown]
  - Cellulitis [Unknown]
  - Tooth abscess [Unknown]
  - Seroma [Unknown]
  - Paronychia [Unknown]
  - Folliculitis [Unknown]
  - Enterobacter infection [Unknown]
  - Staphylococcal infection [Unknown]
